FAERS Safety Report 17570958 (Version 6)
Quarter: 2020Q4

REPORT INFORMATION
  Report Type: Spontaneous
  Country: US (occurrence: US)
  Receive Date: 20200323
  Receipt Date: 20201110
  Transmission Date: 20210113
  Serious: No
  Sender: FDA-Public Use
  Company Number: US-PFIZER INC-2020119290

PATIENT
  Age: 57 Year
  Sex: Female
  Weight: 54.42 kg

DRUGS (11)
  1. VITAMIN C [Concomitant]
     Active Substance: ASCORBIC ACID
     Dosage: UNK
  2. B-COMPLEX [VITAMIN B COMPLEX] [Concomitant]
     Dosage: UNK
  3. PREMPRO [Suspect]
     Active Substance: ESTROGENS, CONJUGATED\MEDROXYPROGESTERONE ACETATE
     Indication: MENOPAUSE
     Dosage: 0.3 MG ESTROGENS CONJUGATED/5 MG MEDROXYPROGESTERONE ACETATE, ONCE DAILY
  4. VALACICLOVIR [Concomitant]
     Active Substance: VALACYCLOVIR HYDROCHLORIDE
     Dosage: 500 MG, UNK
  5. ZYRTEC [Concomitant]
     Active Substance: CETIRIZINE HYDROCHLORIDE
     Dosage: UNK
  6. VIT D [Concomitant]
     Active Substance: VITAMIN D NOS
     Dosage: UNK
  7. MAGNESIUM [Concomitant]
     Active Substance: MAGNESIUM
     Dosage: UNK
  8. FISH OIL [Concomitant]
     Active Substance: FISH OIL
     Dosage: UNK
  9. CALCIUM [Concomitant]
     Active Substance: CALCIUM
     Dosage: UNK
  10. PREMPRO [Suspect]
     Active Substance: ESTROGENS, CONJUGATED\MEDROXYPROGESTERONE ACETATE
     Dosage: UNK, DAILY (0.03/1.5MG DAILY)
     Dates: start: 2007
  11. VIT E [TOCOPHEROL] [Concomitant]
     Dosage: UNK

REACTIONS (4)
  - Frustration tolerance decreased [Unknown]
  - Feeling abnormal [Unknown]
  - Wrong strength [Unknown]
  - Malaise [Unknown]
